FAERS Safety Report 21020063 (Version 7)
Quarter: 2022Q3

REPORT INFORMATION
  Report Type: Report from Study
  Country: AU (occurrence: None)
  Receive Date: 20220628
  Receipt Date: 20220818
  Transmission Date: 20221027
  Serious: Yes (Hospitalization)
  Sender: FDA-Public Use
  Company Number: AU-ROCHE-3120512

PATIENT
  Age: 58 Year
  Sex: Male
  Weight: 93 kg

DRUGS (35)
  1. OCRELIZUMAB [Suspect]
     Active Substance: OCRELIZUMAB
     Indication: Primary progressive multiple sclerosis
     Dosage: ON 10/MAR/2022, SHE RECEIVED MOST RECENT DOSE 300 MG OF BLINDED OCRELIZUMAB PRIOR TO AE.
     Route: 042
     Dates: start: 20220224
  2. PLACEBO [Suspect]
     Active Substance: UNSPECIFIED INGREDIENT
     Indication: Primary progressive multiple sclerosis
     Dosage: ON 04/JUN/2022,  HE RECEIVED MOST RECENT DOSE OF BLINDED FENEBRUTINIB.
     Route: 048
     Dates: start: 20220224
  3. VITAMIN D3 [Concomitant]
     Active Substance: CHOLECALCIFEROL
     Route: 048
     Dates: start: 2013
  4. CALCIUM CITRATE\CHOLECALCIFEROL [Concomitant]
     Active Substance: CALCIUM CITRATE\CHOLECALCIFEROL
     Route: 048
     Dates: start: 2013
  5. ASCORBIC ACID\FERROUS SULFATE [Concomitant]
     Active Substance: ASCORBIC ACID\FERROUS SULFATE
     Route: 048
     Dates: start: 2013
  6. MAGNESIUM [Concomitant]
     Active Substance: MAGNESIUM
     Route: 048
     Dates: start: 2013
  7. VITAMIN B COMPLEX [Concomitant]
     Active Substance: CYANOCOBALAMIN\DEXPANTHENOL\NIACINAMIDE\PYRIDOXINE HYDROCHLORIDE\RIBOFLAVIN 5^-PHOSPHATE SODIUM\THIA
     Route: 048
     Dates: start: 2013
  8. ALLOPURINOL [Concomitant]
     Active Substance: ALLOPURINOL
     Indication: Gouty tophus
     Route: 048
     Dates: start: 202002
  9. COLCHICINE [Concomitant]
     Active Substance: COLCHICINE
     Indication: Gouty tophus
     Dosage: 500 OTHER
     Route: 048
     Dates: start: 20211028
  10. ACETAMINOPHEN\CODEINE PHOSPHATE [Concomitant]
     Active Substance: ACETAMINOPHEN\CODEINE PHOSPHATE
     Indication: Back pain
     Route: 048
     Dates: start: 201911
  11. ACETAMINOPHEN\CODEINE PHOSPHATE [Concomitant]
     Active Substance: ACETAMINOPHEN\CODEINE PHOSPHATE
     Dates: start: 20220713, end: 20220727
  12. DOCUSATE SODIUM\SENNOSIDES A AND B [Concomitant]
     Active Substance: DOCUSATE SODIUM\SENNOSIDES A AND B
     Indication: Constipation
     Route: 048
     Dates: start: 201911
  13. DOCUSATE SODIUM\SENNOSIDES A AND B [Concomitant]
     Active Substance: DOCUSATE SODIUM\SENNOSIDES A AND B
     Route: 048
     Dates: start: 20220623, end: 20220626
  14. AMOROLFINE HYDROCHLORIDE [Concomitant]
     Active Substance: AMOROLFINE HYDROCHLORIDE
     Dosage: 2 OTHER
     Route: 061
     Dates: start: 20220202
  15. LATANOPROST\TIMOLOL MALEATE [Concomitant]
     Active Substance: LATANOPROST\TIMOLOL MALEATE
     Route: 047
     Dates: start: 20220307
  16. TRAMADOL [Concomitant]
     Active Substance: TRAMADOL
     Indication: Chest pain
     Route: 048
     Dates: start: 20220607, end: 20220607
  17. PREDNISOLONE [Concomitant]
     Active Substance: PREDNISOLONE
     Indication: Chest pain
     Route: 048
     Dates: start: 20220607, end: 20220607
  18. PREDNISOLONE [Concomitant]
     Active Substance: PREDNISOLONE
     Route: 048
     Dates: start: 20220614, end: 20220617
  19. PREDNISOLONE [Concomitant]
     Active Substance: PREDNISOLONE
     Route: 048
     Dates: start: 20220618, end: 20220621
  20. ENOXAPARIN [Concomitant]
     Active Substance: ENOXAPARIN
     Route: 058
     Dates: start: 20220614, end: 20220614
  21. ENOXAPARIN [Concomitant]
     Active Substance: ENOXAPARIN
     Route: 058
     Dates: start: 20220616, end: 20220625
  22. IBUPROFEN [Concomitant]
     Active Substance: IBUPROFEN
     Indication: Chest pain
     Route: 048
     Dates: start: 20220615, end: 20220619
  23. COLCHICINE [Concomitant]
     Active Substance: COLCHICINE
     Indication: Gout
     Dosage: 250 OTHER
     Route: 048
     Dates: start: 20220615
  24. MORPHINE [Concomitant]
     Active Substance: MORPHINE
     Indication: Chest pain
     Route: 042
     Dates: start: 20220615, end: 20220615
  25. ACETAMINOPHEN [Concomitant]
     Active Substance: ACETAMINOPHEN
     Indication: Chest pain
     Route: 048
     Dates: start: 20220615, end: 20220626
  26. OXYCODONE [Concomitant]
     Active Substance: OXYCODONE
     Indication: Chest pain
     Route: 048
     Dates: start: 20220614, end: 20220626
  27. TAPENTADOL [Concomitant]
     Active Substance: TAPENTADOL
     Indication: Chest pain
     Route: 048
     Dates: start: 20220615, end: 20220615
  28. OXYCODONE HYDROCHLORIDE [Concomitant]
     Active Substance: OXYCODONE HYDROCHLORIDE
     Indication: Chest pain
     Route: 048
     Dates: start: 20220427, end: 20220509
  29. OXYCODONE HYDROCHLORIDE [Concomitant]
     Active Substance: OXYCODONE HYDROCHLORIDE
     Route: 048
     Dates: start: 20220628, end: 20220713
  30. METFORMIN [Concomitant]
     Active Substance: METFORMIN HYDROCHLORIDE
     Indication: Type 2 diabetes mellitus
     Route: 048
     Dates: start: 20211123
  31. ROSUVASTATIN [Concomitant]
     Active Substance: ROSUVASTATIN
     Route: 048
     Dates: start: 20220607
  32. AMOXICILLIN\CLAVULANATE POTASSIUM [Concomitant]
     Active Substance: AMOXICILLIN\CLAVULANATE POTASSIUM
     Indication: Empyema
     Route: 048
     Dates: start: 20220626, end: 20220706
  33. MOVICOL [Concomitant]
     Active Substance: POLYETHYLENE GLYCOL 3350\POTASSIUM CHLORIDE\SODIUM BICARBONATE\SODIUM CHLORIDE
     Indication: Constipation
     Dosage: 1 OTHER
     Route: 048
     Dates: start: 20220623, end: 20220624
  34. PANTOPRAZOLE [Concomitant]
     Active Substance: PANTOPRAZOLE
     Route: 048
     Dates: start: 20220617, end: 20220626
  35. ROPIVACAINE [Concomitant]
     Active Substance: ROPIVACAINE
     Route: 065
     Dates: start: 20220621, end: 20220621

REACTIONS (1)
  - Empyema [Recovered/Resolved]

NARRATIVE: CASE EVENT DATE: 20220605
